FAERS Safety Report 8581933 (Version 2)
Quarter: 2013Q1

REPORT INFORMATION
  Report Type: Spontaneous
  Country: US (occurrence: US)
  Receive Date: 20120528
  Receipt Date: 20130121
  Transmission Date: 20140127
  Serious: No
  Sender: FDA-Public Use
  Company Number: US-PFIZER INC-2012125734

PATIENT
  Age: 21 Year
  Sex: Female

DRUGS (4)
  1. GEODON [Suspect]
     Indication: BIPOLAR DISORDER
     Dosage: 40 MG, UNK
  2. GEODON [Suspect]
     Dosage: 20 MG, QHS
  3. LEXAPRO [Concomitant]
     Dosage: UNK
  4. LOESTRIN 24 FE [Concomitant]
     Dosage: UNK

REACTIONS (1)
  - Tremor [Unknown]
